FAERS Safety Report 20673208 (Version 3)
Quarter: 2022Q3

REPORT INFORMATION
  Report Type: Other
  Country: JP (occurrence: JP)
  Receive Date: 20220405
  Receipt Date: 20220719
  Transmission Date: 20221026
  Serious: Yes (Hospitalization)
  Sender: FDA-Public Use
  Company Number: None

PATIENT
  Age: 55 Year
  Sex: Female
  Weight: 46 kg

DRUGS (12)
  1. VEMURAFENIB [Suspect]
     Active Substance: VEMURAFENIB
     Indication: Malignant melanoma
     Dosage: 1920 MILLIGRAM, QD
     Route: 048
     Dates: start: 20151016, end: 20151102
  2. VEMURAFENIB [Suspect]
     Active Substance: VEMURAFENIB
     Dosage: 960 MILLIGRAM, QD
     Route: 048
     Dates: start: 20151110, end: 20151112
  3. VEMURAFENIB [Suspect]
     Active Substance: VEMURAFENIB
     Dosage: 1440 MILLIGRAM, QD
     Route: 048
     Dates: start: 20151113, end: 20160307
  4. VEMURAFENIB [Suspect]
     Active Substance: VEMURAFENIB
     Dosage: 1440 MILLIGRAM, QD
     Route: 048
     Dates: start: 20160323, end: 20160529
  5. VEMURAFENIB [Suspect]
     Active Substance: VEMURAFENIB
     Dosage: 720 MILLIGRAM, QD
     Route: 048
  6. NIVOLUMAB [Suspect]
     Active Substance: NIVOLUMAB
     Indication: Malignant melanoma
     Dosage: 3 MILLIGRAM/KILOGRAM, ONCE/2WEEKS
     Route: 041
  7. TRAMETINIB [Suspect]
     Active Substance: TRAMETINIB
     Indication: Malignant melanoma
     Dosage: 2 MILLIGRAM, QD
     Route: 065
  8. DABRAFENIB [Suspect]
     Active Substance: DABRAFENIB
     Indication: Malignant melanoma
     Dosage: 300 MILLIGRAM, QD
     Route: 065
  9. AMLODIPINE BESYLATE [Concomitant]
     Active Substance: AMLODIPINE BESYLATE
     Dosage: UNK MILLIGRAM
     Route: 048
     Dates: start: 20160315
  10. TRAMCET [Concomitant]
     Active Substance: ACETAMINOPHEN\TRAMADOL
     Dosage: UNK
     Route: 048
     Dates: start: 20160315
  11. LEVOTHYROXINE SODIUM [Concomitant]
     Active Substance: LEVOTHYROXINE SODIUM
     Dosage: UNK
     Route: 048
     Dates: start: 20151023
  12. ALESION [Concomitant]
     Active Substance: EPINASTINE HYDROCHLORIDE
     Dosage: UNK
     Route: 048
     Dates: start: 20151117

REACTIONS (6)
  - Haemophagocytic lymphohistiocytosis [Unknown]
  - Drug eruption [Recovered/Resolved]
  - Liver disorder [Recovered/Resolved]
  - Pyrexia [Recovered/Resolved]
  - White blood cell count decreased [Recovered/Resolved]
  - Diarrhoea [Recovering/Resolving]

NARRATIVE: CASE EVENT DATE: 20151031
